FAERS Safety Report 4344839-X (Version None)
Quarter: 2004Q2

REPORT INFORMATION
  Report Type: 
  Country: None (occurrence: None)
  Receive Date: 20040416
  Receipt Date: 19951222
  Transmission Date: 20050107
  Serious: Yes (Death, Life-Threatening, Hospitalization)
  Sender: FDA-Public Use
  Company Number: WAES 96031195

PATIENT
  Age: 1 Month
  Sex: Male

DRUGS (9)
  1. INDOCIN I.V. [Suspect]
     Indication: PATENT DUCTUS ARTERIOSUS
     Dosage: SEE IMAGE
     Route: 042
     Dates: start: 19950901, end: 19950901
  2. INDOCIN I.V. [Suspect]
     Indication: PATENT DUCTUS ARTERIOSUS
     Dosage: SEE IMAGE
     Route: 042
     Dates: start: 19950902, end: 19950902
  3. INDOCIN I.V. [Suspect]
     Indication: PATENT DUCTUS ARTERIOSUS
     Dosage: SEE IMAGE
     Route: 042
     Dates: start: 19950903, end: 19950903
  4. INDOCIN I.V. [Suspect]
     Indication: PATENT DUCTUS ARTERIOSUS
     Dosage: SEE IMAGE
     Route: 042
     Dates: start: 19950910, end: 19950910
  5. AMPICILLIN [Concomitant]
  6. CEFOTAXIME [Concomitant]
  7. DOBUTAMINE [Concomitant]
  8. DOPAMINE HCL [Concomitant]
  9. WHOLE BLOOD [Concomitant]

REACTIONS (8)
  - ABDOMINAL DISTENSION [None]
  - BACTERIAL SEPSIS [None]
  - BLOOD CREATININE INCREASED [None]
  - BLOOD UREA INCREASED [None]
  - CONDITION AGGRAVATED [None]
  - GASTROINTESTINAL MOTILITY DISORDER [None]
  - GASTROINTESTINAL PERFORATION [None]
  - RENAL IMPAIRMENT [None]
